FAERS Safety Report 4318104-0 (Version None)
Quarter: 2004Q1

REPORT INFORMATION
  Report Type: 
  Country: None (occurrence: None)
  Receive Date: 20040315
  Receipt Date: 20040302
  Transmission Date: 20041129
  Serious: Yes (Hospitalization)
  Sender: FDA-Public Use
  Company Number: NSADSS2003006172

PATIENT
  Age: 56 Year
  Sex: Male
  Weight: 83 kg

DRUGS (8)
  1. REMICADE [Suspect]
     Indication: RHEUMATOID ARTHRITIS
     Dosage: 400 MG, 1 IN AS NECESSARY, INTRAVENOUS DRIP; 300 MG, 1 IN 1 AS NECESSARY, INTRAVENOUS DRIP
     Route: 041
     Dates: start: 20021112, end: 20021112
  2. SULFASALAZINE [Concomitant]
  3. NAPROSYN [Concomitant]
  4. GLUCOSAMINE (GLUCOSAMINE) [Concomitant]
  5. FLOMAX [Concomitant]
  6. MVI (MULTIVITAMINS) [Concomitant]
  7. VITAMIN E [Concomitant]
  8. CYTO (ALL OTHER THERAPEUTIC PRODUCTS) [Concomitant]

REACTIONS (8)
  - CARDIAC FAILURE CONGESTIVE [None]
  - CARDIOMYOPATHY [None]
  - DYSPNOEA [None]
  - DYSPNOEA EXERTIONAL [None]
  - DYSPNOEA PAROXYSMAL NOCTURNAL [None]
  - ORTHOPNOEA [None]
  - PLEURAL EFFUSION [None]
  - WEIGHT INCREASED [None]
